FAERS Safety Report 7128075-X (Version None)
Quarter: 2010Q4

REPORT INFORMATION
  Report Type: 
  Country: None (occurrence: None)
  Receive Date: 20101130
  Receipt Date: 20101011
  Transmission Date: 20110411
  Serious: No
  Sender: FDA-Public Use
  Company Number: US-ALLERGAN-1013095US

PATIENT
  Age: 26 Year
  Sex: Female

DRUGS (1)
  1. ZYMAXID [Suspect]
     Indication: HORDEOLUM
     Dosage: 1 GTT, QD
     Route: 047
     Dates: start: 20101008, end: 20101009

REACTIONS (1)
  - MYDRIASIS [None]
